FAERS Safety Report 21761780 (Version 3)
Quarter: 2023Q1

REPORT INFORMATION
  Report Type: Spontaneous
  Country: US (occurrence: US)
  Receive Date: 20221221
  Receipt Date: 20230314
  Transmission Date: 20230418
  Serious: No
  Sender: FDA-Public Use
  Company Number: US-PFIZER INC-PV202200128106

PATIENT
  Age: 74 Year
  Sex: Male

DRUGS (1)
  1. RETACRIT [Suspect]
     Active Substance: EPOETIN ALFA-EPBX
     Dosage: 6000 IU, (6,000 UNITS 3 TIMES WEEKLY) QUANTITY: 12 REFILLS: 11

REACTIONS (1)
  - Off label use [Unknown]
